FAERS Safety Report 17295264 (Version 2)
Quarter: 2020Q1

REPORT INFORMATION
  Report Type: Spontaneous
  Country: US (occurrence: US)
  Receive Date: 20200121
  Receipt Date: 20200203
  Transmission Date: 20200409
  Serious: No
  Sender: FDA-Public Use
  Company Number: US-PFIZER INC-2020026358

PATIENT
  Age: 48 Year
  Sex: Female
  Weight: 61.68 kg

DRUGS (6)
  1. TOVIAZ [Suspect]
     Active Substance: FESOTERODINE FUMARATE
     Indication: PELVIC PAIN
     Dosage: 8 MG, DAILY(PRESCRIBED MEDS: TOVIAZ (ORAL TABLET) 8 MG 30QTY, 11 REFILLS)
     Route: 048
  2. TOVIAZ [Suspect]
     Active Substance: FESOTERODINE FUMARATE
     Indication: POLLAKIURIA
  3. TOVIAZ [Suspect]
     Active Substance: FESOTERODINE FUMARATE
     Indication: URINARY TRACT DISORDER
     Dosage: 4 MG, DAILY
     Route: 048
  4. TOVIAZ [Suspect]
     Active Substance: FESOTERODINE FUMARATE
     Indication: PERINEAL PAIN
  5. TOVIAZ [Suspect]
     Active Substance: FESOTERODINE FUMARATE
     Indication: DYSURIA
  6. TOVIAZ [Suspect]
     Active Substance: FESOTERODINE FUMARATE
     Indication: HYPERTONIC BLADDER

REACTIONS (3)
  - Constipation [Unknown]
  - Dry mouth [Unknown]
  - Therapeutic product effect incomplete [Unknown]
